FAERS Safety Report 8052859-7 (Version None)
Quarter: 2012Q1

REPORT INFORMATION
  Report Type: 
  Country: None (occurrence: None)
  Receive Date: 20120118
  Receipt Date: 20120113
  Transmission Date: 20120608
  Serious: Yes (Hospitalization)
  Sender: FDA-Public Use
  Company Number: JP-JNJFOC-20120105629

PATIENT
  Sex: Female

DRUGS (5)
  1. QUETIAPINE FUMARATE [Concomitant]
     Route: 048
     Dates: start: 20111125, end: 20111214
  2. MEPIVACAINE HCL [Concomitant]
     Indication: PAIN
     Route: 065
     Dates: start: 20111130, end: 20111205
  3. AN UNKNOWN MEDICATION [Concomitant]
     Route: 048
     Dates: start: 20111212, end: 20111214
  4. FENTANYL-100 [Suspect]
     Indication: PAIN
     Route: 062
     Dates: start: 20111206, end: 20111209
  5. MORPHINE HYDROCHLORIDE [Concomitant]
     Indication: PAIN
     Route: 048
     Dates: start: 20111118, end: 20111206

REACTIONS (1)
  - DELIRIUM [None]
